FAERS Safety Report 8202720-X (Version None)
Quarter: 2012Q1

REPORT INFORMATION
  Report Type: 
  Country: None (occurrence: None)
  Receive Date: 20120227
  Receipt Date: 20120105
  Transmission Date: 20120608
  Serious: Yes (Hospitalization)
  Sender: FDA-Public Use
  Company Number: 342608

PATIENT
  Age: 58 Year
  Sex: Female

DRUGS (5)
  1. SYNTHROID [Concomitant]
  2. CARDIZEM [Concomitant]
  3. AMARYL [Concomitant]
  4. LISINOPRIL [Concomitant]
  5. VICTOZA [Suspect]
     Indication: TYPE 2 DIABETES MELLITUS
     Dosage: 1.8 MG, QD, SUBCUTANEOUS
     Route: 058
     Dates: start: 20110823, end: 20111119

REACTIONS (1)
  - PANCREATITIS NECROTISING [None]
